FAERS Safety Report 8284890-0 (Version None)
Quarter: 2012Q2

REPORT INFORMATION
  Report Type: 
  Country: None (occurrence: None)
  Receive Date: 20120413
  Receipt Date: 20120130
  Transmission Date: 20120825
  Serious: No
  Sender: FDA-Public Use
  Company Number: US-ASTRAZENECA-2010SE43808

PATIENT
  Age: 58 Year
  Sex: Male

DRUGS (5)
  1. TAGAMET [Concomitant]
  2. ZANTAC [Concomitant]
  3. NEXIUM [Suspect]
     Route: 048
  4. PRILOSEC [Suspect]
     Route: 048
  5. PRILOSEC OTC [Concomitant]

REACTIONS (5)
  - URINARY TRACT INFECTION [None]
  - IRRITABLE BOWEL SYNDROME [None]
  - DRUG INEFFECTIVE [None]
  - HERNIA [None]
  - ABDOMINAL PAIN UPPER [None]
